FAERS Safety Report 7507086-6 (Version None)
Quarter: 2011Q2

REPORT INFORMATION
  Report Type: 
  Country: None (occurrence: None)
  Receive Date: 20110411
  Receipt Date: 20101216
  Transmission Date: 20111010
  Serious: Yes (Congenital Anomaly)
  Sender: FDA-Public Use
  Company Number: 011511

PATIENT
  Age: 9 Day
  Sex: Female

DRUGS (7)
  1. PRENATAL VITAMINS /01549301/ (PRENATAL VITAMINS /01549301/) [Concomitant]
  2. VITAMINE D VOOR SENIOREN (VITAMINE D VOOR SENIOREN) [Concomitant]
  3. LEVOTHYROXINE SODIUM [Concomitant]
  4. ALBUTEROL [Concomitant]
  5. KEPPRA [Suspect]
     Dosage: 2000 MG, 2500 MG, 3000 MG, TRANSPLACENTAL
     Route: 064
     Dates: start: 20090504
  6. CELEXA [Concomitant]
  7. INFLUENZA VACCINE (INFLUENZA VACCINE) [Concomitant]

REACTIONS (3)
  - VENTRICULAR SEPTAL DEFECT [None]
  - CANDIDIASIS [None]
  - DRUG EXPOSURE DURING PREGNANCY [None]
